FAERS Safety Report 20087153 (Version 1)
Quarter: 2021Q4

REPORT INFORMATION
  Report Type: Spontaneous
  Country: DE (occurrence: DE)
  Receive Date: 20211118
  Receipt Date: 20211118
  Transmission Date: 20220303
  Serious: Yes (Other)
  Sender: FDA-Public Use
  Company Number: DE-EMBRYOTOX-202008530

PATIENT
  Age: 34 Year
  Sex: Female
  Weight: 80 kg

DRUGS (2)
  1. ALPRAZOLAM [Suspect]
     Active Substance: ALPRAZOLAM
     Indication: Anxiety disorder
     Dosage: UNK, 2 [MG/D ]
     Route: 048
     Dates: start: 20191225, end: 20200806
  2. CITALOPRAM [Suspect]
     Active Substance: CITALOPRAM HYDROBROMIDE
     Indication: Depression
     Dosage: UNK, 40 [MG/D ]
     Route: 048
     Dates: start: 20191225, end: 20200806

REACTIONS (2)
  - Stillbirth [Recovered/Resolved]
  - Exposure during pregnancy [Unknown]
